FAERS Safety Report 4637576-5 (Version None)
Quarter: 2005Q2

REPORT INFORMATION
  Report Type: 
  Country: None (occurrence: None)
  Receive Date: 20050418
  Receipt Date: 20050412
  Transmission Date: 20051028
  Serious: Yes (Life-Threatening)
  Sender: FDA-Public Use
  Company Number: AU-BOEHRINGER INGELHEIM PHARMACEUTICALS, INC.-2005-BP-05958AU

PATIENT

DRUGS (1)
  1. MOBIC [Suspect]
     Route: 048

REACTIONS (4)
  - CARDIAC DISORDER [None]
  - COUGH [None]
  - DYSPNOEA [None]
  - INSOMNIA [None]
